FAERS Safety Report 8622760-6 (Version None)
Quarter: 2012Q3

REPORT INFORMATION
  Report Type: 
  Country: None (occurrence: None)
  Receive Date: 20120827
  Receipt Date: 20120731
  Transmission Date: 20120928
  Serious: No
  Sender: FDA-Public Use
  Company Number: US-JNJFOC-20120802716

PATIENT
  Sex: Male

DRUGS (5)
  1. INVEGA SUSTENNA [Suspect]
     Indication: SCHIZOPHRENIA
     Route: 030
     Dates: start: 20120716
  2. ZYPREXA [Concomitant]
     Route: 048
  3. LEXAPRO [Concomitant]
     Route: 048
  4. INVEGA SUSTENNA [Suspect]
     Route: 030
     Dates: start: 20120529
  5. DEPAKOTE [Concomitant]
     Indication: CONVULSION
     Route: 048

REACTIONS (1)
  - DRUG DOSE OMISSION [None]
